FAERS Safety Report 18985652 (Version 1)
Quarter: 2021Q1

REPORT INFORMATION
  Report Type: Spontaneous
  Country: GB (occurrence: GB)
  Receive Date: 20210309
  Receipt Date: 20210309
  Transmission Date: 20210420
  Serious: Yes (Hospitalization, Disabling, Other)
  Sender: FDA-Public Use
  Company Number: GB-PFIZER INC-2021217506

PATIENT
  Age: 74 Year
  Sex: Male
  Weight: 135 kg

DRUGS (5)
  1. METHOTREXATE SODIUM. [Suspect]
     Active Substance: METHOTREXATE SODIUM
     Indication: RHEUMATOID ARTHRITIS
     Dosage: 15 MG, WEEKLY
     Route: 048
     Dates: end: 20210218
  2. CO?DYDRAMOL [Concomitant]
     Active Substance: ACETAMINOPHEN\DIHYDROCODEINE
     Indication: ILL-DEFINED DISORDER
  3. LAXIDO [Concomitant]
     Active Substance: POLYETHYLENE GLYCOL 3350\POTASSIUM CHLORIDE\SODIUM BICARBONATE\SODIUM CHLORIDE
     Indication: ILL-DEFINED DISORDER
  4. CO?CARELDOPA [Concomitant]
     Active Substance: CARBIDOPA\LEVODOPA
     Indication: ILL-DEFINED DISORDER
  5. FOLIC ACID. [Concomitant]
     Active Substance: FOLIC ACID
     Indication: ILL-DEFINED DISORDER

REACTIONS (2)
  - Pneumonitis [Recovering/Resolving]
  - Dyspnoea [Unknown]
